FAERS Safety Report 6689804-2 (Version None)
Quarter: 2010Q2

REPORT INFORMATION
  Report Type: 
  Country: None (occurrence: None)
  Receive Date: 20100421
  Receipt Date: 20100409
  Transmission Date: 20101027
  Serious: Yes (Other)
  Sender: FDA-Public Use
  Company Number: HQWYE545027MAR06

PATIENT
  Sex: Female

DRUGS (4)
  1. PREMARIN [Suspect]
     Indication: OESTROGEN REPLACEMENT THERAPY
  2. ESTRADERM [Suspect]
     Indication: HORMONE REPLACEMENT THERAPY
  3. NORLUTATE [Suspect]
  4. PROVERA [Suspect]
     Indication: HORMONE REPLACEMENT THERAPY

REACTIONS (1)
  - BREAST CANCER RECURRENT [None]
